FAERS Safety Report 19154023 (Version 1)
Quarter: 2021Q2

REPORT INFORMATION
  Report Type: Report from Study
  Country: US (occurrence: US)
  Receive Date: 20210419
  Receipt Date: 20210419
  Transmission Date: 20210717
  Serious: Yes (Life-Threatening, Hospitalization)
  Sender: FDA-Public Use
  Company Number: US-JNJFOC-20210431148

PATIENT
  Age: 44 Year
  Sex: Male

DRUGS (3)
  1. SPRAVATO [Suspect]
     Active Substance: ESKETAMINE
     Indication: DEPRESSION
     Dosage: 2 TOTAL DOSES
     Dates: start: 20210305, end: 20210311
  2. SPRAVATO [Suspect]
     Active Substance: ESKETAMINE
     Dosage: 5 TOTAL DOSES
     Dates: start: 20210408, end: 20210408
  3. SPRAVATO [Suspect]
     Active Substance: ESKETAMINE
     Dosage: 5 TOTAL DOSES
     Dates: start: 20210319, end: 20210402

REACTIONS (1)
  - Suicide attempt [Unknown]
